FAERS Safety Report 17307570 (Version 5)
Quarter: 2020Q3

REPORT INFORMATION
  Report Type: Other
  Country: US (occurrence: US)
  Receive Date: 20200123
  Receipt Date: 20200928
  Transmission Date: 20201102
  Serious: Yes (Other)
  Sender: FDA-Public Use
  Company Number: US-ROCHE-2525747

PATIENT
  Sex: Female
  Weight: 77.18 kg

DRUGS (12)
  1. ATORVASTATIN [Concomitant]
     Active Substance: ATORVASTATIN
     Indication: BLOOD CHOLESTEROL INCREASED
     Route: 048
  2. FLEXERIL [Concomitant]
     Active Substance: CYCLOBENZAPRINE HYDROCHLORIDE
  3. CRANBERRY. [Concomitant]
     Active Substance: CRANBERRY
     Indication: INFECTION PROPHYLAXIS
  4. OCREVUS [Suspect]
     Active Substance: OCRELIZUMAB
     Indication: RELAPSING MULTIPLE SCLEROSIS
     Route: 042
     Dates: start: 20190524
  5. CLONAZEPAM. [Concomitant]
     Active Substance: CLONAZEPAM
     Route: 048
  6. MIRTAZAPINE. [Concomitant]
     Active Substance: MIRTAZAPINE
     Route: 048
  7. OCREVUS [Suspect]
     Active Substance: OCRELIZUMAB
     Indication: MULTIPLE SCLEROSIS
     Dosage: 300 MG DAY 1 AND DAY 15
     Route: 042
     Dates: start: 201905
  8. OCREVUS [Suspect]
     Active Substance: OCRELIZUMAB
     Route: 042
     Dates: start: 20200207
  9. ADDERALL [Concomitant]
     Active Substance: AMPHETAMINE ASPARTATE\AMPHETAMINE SULFATE\DEXTROAMPHETAMINE SACCHARATE\DEXTROAMPHETAMINE SULFATE
  10. AMPHETAMINE SULFATE. [Concomitant]
     Active Substance: AMPHETAMINE SULFATE
     Dosage: ORAL 1 TAB DAILY
     Route: 048
  11. MYRBETRIQ [Concomitant]
     Active Substance: MIRABEGRON
  12. REMERON [Concomitant]
     Active Substance: MIRTAZAPINE

REACTIONS (9)
  - Peripheral swelling [Recovered/Resolved]
  - Constipation [Unknown]
  - Gait disturbance [Unknown]
  - Paraesthesia [Unknown]
  - Neurogenic bladder [Unknown]
  - Throat tightness [Recovered/Resolved]
  - Cognitive disorder [Unknown]
  - Varicella zoster virus infection [Unknown]
  - Asthenia [Unknown]
